FAERS Safety Report 15518070 (Version 2)
Quarter: 2018Q4

REPORT INFORMATION
  Report Type: Spontaneous
  Country: US (occurrence: US)
  Receive Date: 20181017
  Receipt Date: 20181112
  Transmission Date: 20190205
  Serious: No
  Sender: FDA-Public Use
  Company Number: US-PFIZER INC-2018417628

PATIENT
  Age: 62 Year
  Sex: Male

DRUGS (2)
  1. TERRAMYCIN [Suspect]
     Active Substance: OXYTETRACYCLINE\OXYTETRACYCLINE HYDROCHLORIDE
     Dosage: UNK
  2. IODINE. [Concomitant]
     Active Substance: IODINE
     Dosage: UNK

REACTIONS (4)
  - Therapeutic response unexpected [Recovered/Resolved]
  - Off label use [Unknown]
  - Occupational exposure to product [Unknown]
  - Pruritus [Recovered/Resolved]
